FAERS Safety Report 20874653 (Version 1)
Quarter: 2022Q2

REPORT INFORMATION
  Report Type: Report from Study
  Country: AU (occurrence: AU)
  Receive Date: 20220525
  Receipt Date: 20220525
  Transmission Date: 20220721
  Serious: Yes (Other)
  Sender: FDA-Public Use
  Company Number: AU-ABBVIE-22K-008-4372860-00

PATIENT
  Sex: Female

DRUGS (3)
  1. CARBIDOPA\LEVODOPA [Suspect]
     Active Substance: CARBIDOPA\LEVODOPA
     Indication: Parkinson^s disease
     Dosage: DUODOPA 100 ML GEL CASSETTE
     Route: 050
     Dates: start: 20200312
  2. CARBIDOPA\LEVODOPA [Suspect]
     Active Substance: CARBIDOPA\LEVODOPA
     Dosage: DOSE INCREASED
     Route: 050
  3. MOVICOL [Concomitant]
     Active Substance: POLYETHYLENE GLYCOL 3350\POTASSIUM CHLORIDE\SODIUM BICARBONATE\SODIUM CHLORIDE
     Indication: Faecal management
     Dosage: PRN IF NEEDED

REACTIONS (11)
  - Loss of consciousness [Recovered/Resolved]
  - Mobility decreased [Not Recovered/Not Resolved]
  - Panic reaction [Unknown]
  - Salivary hypersecretion [Unknown]
  - Stoma site extravasation [Unknown]
  - Stoma site hypergranulation [Unknown]
  - Anxiety [Not Recovered/Not Resolved]
  - Dysphagia [Unknown]
  - Excessive granulation tissue [Unknown]
  - Unevaluable event [Unknown]
  - Device occlusion [Unknown]

NARRATIVE: CASE EVENT DATE: 20220101
